FAERS Safety Report 25157123 (Version 1)
Quarter: 2025Q2

REPORT INFORMATION
  Report Type: Spontaneous
  Country: BE (occurrence: BE)
  Receive Date: 20250403
  Receipt Date: 20250403
  Transmission Date: 20250717
  Serious: Yes (Death, Life-Threatening, Hospitalization)
  Sender: BRISTOL MYERS SQUIBB
  Company Number: BE-BRISTOL-MYERS SQUIBB COMPANY-2025-049161

PATIENT
  Age: 70 Year
  Sex: Male

DRUGS (1)
  1. OPDUALAG [Suspect]
     Active Substance: NIVOLUMAB\RELATLIMAB-RMBW
     Indication: Malignant melanoma

REACTIONS (1)
  - General physical health deterioration [Fatal]
